FAERS Safety Report 14120660 (Version 1)
Quarter: 2017Q4

REPORT INFORMATION
  Report Type: Spontaneous
  Country: JP (occurrence: JP)
  Receive Date: 20171024
  Receipt Date: 20171024
  Transmission Date: 20180321
  Serious: Yes (Life-Threatening, Hospitalization, Other)
  Sender: FDA-Public Use
  Company Number: JP-MYLANLABS-2017M1066681

PATIENT
  Age: 30 Year
  Sex: Male

DRUGS (2)
  1. THEOPHYLLINE [Concomitant]
     Active Substance: THEOPHYLLINE ANHYDROUS
     Indication: ASTHMA
     Route: 065
  2. HYDROCORTISONE. [Suspect]
     Active Substance: HYDROCORTISONE
     Indication: ASTHMA
     Route: 042

REACTIONS (8)
  - Right ventricular failure [Unknown]
  - Condition aggravated [Unknown]
  - Respiratory failure [Unknown]
  - Eosinophil count abnormal [Recovered/Resolved]
  - Pulmonary hypertension [Recovering/Resolving]
  - Emphysema [Unknown]
  - False negative investigation result [Recovered/Resolved]
  - Chronic obstructive pulmonary disease [Unknown]
